FAERS Safety Report 9825234 (Version 2)
Quarter: 2014Q2

REPORT INFORMATION
  Report Type: Spontaneous
  Country: US (occurrence: US)
  Receive Date: 20140117
  Receipt Date: 20140626
  Transmission Date: 20141212
  Serious: Yes (Other)
  Sender: FDA-Public Use
  Company Number: US-BAYER-2014-008215

PATIENT
  Age: 31 Year
  Sex: Female
  Weight: 65.76 kg

DRUGS (6)
  1. YAZ [Suspect]
     Indication: ACNE
     Dosage: UNK
     Dates: start: 201012, end: 201112
  2. YASMIN [Suspect]
     Indication: ACNE
     Dosage: UNK
     Dates: start: 201012, end: 201112
  3. OCELLA [Suspect]
     Indication: ACNE
     Dosage: UNK
     Dates: start: 201012, end: 201112
  4. METRONIDAZOLE [Concomitant]
     Dosage: 250 MG, UNK
     Route: 048
     Dates: start: 20111011
  5. VALTREX [Concomitant]
     Dosage: UNK
     Route: 048
     Dates: start: 20111217
  6. VALACICLOVIR HYDROCHLORIDE [Concomitant]
     Dosage: 1 G, UNK
     Route: 048
     Dates: start: 20111227

REACTIONS (3)
  - Deep vein thrombosis [None]
  - Pain [None]
  - Pain [None]
